FAERS Safety Report 25297369 (Version 1)
Quarter: 2025Q2

REPORT INFORMATION
  Report Type: Spontaneous
  Country: US (occurrence: US)
  Receive Date: 20250511
  Receipt Date: 20250511
  Transmission Date: 20250716
  Serious: No
  Sender: SANOFI AVENTIS
  Company Number: US-SA-2025SA131470

PATIENT
  Age: 67 Year
  Sex: Male

DRUGS (6)
  1. DUPIXENT [Suspect]
     Active Substance: DUPILUMAB
     Indication: Chronic obstructive pulmonary disease
     Route: 058
     Dates: start: 202503, end: 202503
  2. DUPIXENT [Suspect]
     Active Substance: DUPILUMAB
     Indication: Asthma
     Route: 058
     Dates: start: 2025, end: 2025
  3. FLUTICASONE [Concomitant]
     Active Substance: FLUTICASONE
  4. IPRATROPIUM [Concomitant]
     Active Substance: IPRATROPIUM
  5. OXYGEN [Concomitant]
     Active Substance: OXYGEN
  6. SINGULAIR [Concomitant]
     Active Substance: MONTELUKAST SODIUM

REACTIONS (1)
  - Respiratory disorder [Recovering/Resolving]

NARRATIVE: CASE EVENT DATE: 20250101
